FAERS Safety Report 7279352-3 (Version None)
Quarter: 2011Q1

REPORT INFORMATION
  Report Type: 
  Country: None (occurrence: None)
  Receive Date: 20110207
  Receipt Date: 20110202
  Transmission Date: 20110831
  Serious: Yes (Death, Hospitalization)
  Sender: FDA-Public Use
  Company Number: IN-BRISTOL-MYERS SQUIBB COMPANY-15460710

PATIENT
  Age: 5 Decade
  Sex: Female

DRUGS (5)
  1. METFORMIN HCL [Suspect]
     Indication: DIABETES MELLITUS
  2. CALCIUM [Concomitant]
  3. RAMIPRIL [Suspect]
     Indication: HYPERTENSION
  4. ONGLYZA [Suspect]
     Indication: DIABETES MELLITUS
     Dosage: 2 DOSES ON TWO DAYS
  5. GLIMEPIRIDE [Concomitant]
     Indication: DIABETES MELLITUS

REACTIONS (3)
  - URINARY TRACT INFECTION [None]
  - ANAPHYLACTIC REACTION [None]
  - HYPONATRAEMIA [None]
